FAERS Safety Report 6094413-2 (Version None)
Quarter: 2009Q1

REPORT INFORMATION
  Report Type: 
  Country: None (occurrence: None)
  Receive Date: 20090226
  Receipt Date: 20080319
  Transmission Date: 20090719
  Serious: No
  Sender: FDA-Public Use
  Company Number: A0711980A

PATIENT
  Age: 60 Year
  Sex: Female
  Weight: 80 kg

DRUGS (3)
  1. ALKERAN [Suspect]
     Indication: MULTIPLE MYELOMA
     Route: 048
     Dates: start: 20051001
  2. PREDNISONE [Suspect]
     Indication: DRUG USE FOR UNKNOWN INDICATION
  3. CONCURRENT MEDICATIONS [Concomitant]

REACTIONS (1)
  - PROTEIN TOTAL INCREASED [None]
